FAERS Safety Report 19552791 (Version 1)
Quarter: 2021Q3

REPORT INFORMATION
  Report Type: Spontaneous
  Country: ES (occurrence: ES)
  Receive Date: 20210715
  Receipt Date: 20210715
  Transmission Date: 20211014
  Serious: Yes (Life-Threatening, Hospitalization, Other)
  Sender: FDA-Public Use
  Company Number: ES-AUROBINDO-AUR-APL-2021-029956

PATIENT
  Age: 26 Year
  Sex: Female

DRUGS (2)
  1. VALERIANA [Suspect]
     Active Substance: VALERIAN
     Indication: PRODUCT USED FOR UNKNOWN INDICATION
     Dosage: UNK
     Route: 048
     Dates: start: 20210419, end: 20210419
  2. PARACETAMOL [Suspect]
     Active Substance: ACETAMINOPHEN
     Indication: PRODUCT USED FOR UNKNOWN INDICATION
     Dosage: 40 MILLIGRAM (1 TOTAL)40,000 MG OF PARACETAMOL
     Route: 048
     Dates: start: 20210419, end: 20210419

REACTIONS (2)
  - Acute hepatic failure [Recovering/Resolving]
  - Intentional overdose [Recovering/Resolving]

NARRATIVE: CASE EVENT DATE: 20210420
